FAERS Safety Report 19802146 (Version 2)
Quarter: 2021Q3

REPORT INFORMATION
  Report Type: Spontaneous
  Country: NL (occurrence: NL)
  Receive Date: 20210908
  Receipt Date: 20210910
  Transmission Date: 20211014
  Serious: Yes (Other)
  Sender: FDA-Public Use
  Company Number: NL-IPSEN BIOPHARMACEUTICALS, INC.-2021-21301

PATIENT
  Age: 44 Year
  Sex: Male

DRUGS (4)
  1. DYSPORT [Suspect]
     Active Substance: ABOBOTULINUMTOXINA
     Indication: OFF LABEL USE
  2. TECFIDERA [Concomitant]
     Active Substance: DIMETHYL FUMARATE
     Indication: MULTIPLE SCLEROSIS
     Dosage: TWICE A DAY
     Dates: start: 20190117
  3. DYSPORT [Suspect]
     Active Substance: ABOBOTULINUMTOXINA
     Indication: MUSCLE SPASTICITY
     Dosage: 920 IU (GASTROCNEMIUS 500IU, SOLEUS 200 IU, TIBIALIS POSTERIOR 160 IU, RECTUS FEMORIS 60IU)
     Route: 030
     Dates: start: 20210531, end: 20210531
  4. FAMPYRA [Concomitant]
     Active Substance: DALFAMPRIDINE
     Indication: MULTIPLE SCLEROSIS
     Dosage: TWICE A DAY
     Dates: start: 20201111

REACTIONS (2)
  - Peripheral artery occlusion [Not Recovered/Not Resolved]
  - Off label use [Unknown]

NARRATIVE: CASE EVENT DATE: 20210531
